FAERS Safety Report 14163491 (Version 12)
Quarter: 2018Q4

REPORT INFORMATION
  Report Type: Report from Study
  Country: US (occurrence: US)
  Receive Date: 20171106
  Receipt Date: 20181205
  Transmission Date: 20190204
  Serious: Yes (Hospitalization, Other)
  Sender: FDA-Public Use
  Company Number: US-ACTELION-A-US2017-156020

PATIENT
  Age: 53 Year
  Sex: Female
  Weight: 53.52 kg

DRUGS (17)
  1. LORAZEPAM. [Concomitant]
     Active Substance: LORAZEPAM
     Dosage: 0.5 MG, QD
  2. UPTRAVI [Suspect]
     Active Substance: SELEXIPAG
     Dosage: UNK
     Route: 048
     Dates: start: 20170613
  3. ADEMPAS [Suspect]
     Active Substance: RIOCIGUAT
     Indication: PRODUCT USED FOR UNKNOWN INDICATION
     Dosage: 2 MG, TID
     Route: 065
  4. TYLENOL ARTHRITIS PAIN [Concomitant]
     Active Substance: ACETAMINOPHEN
     Dosage: UNK, QD
  5. LEXAPRO [Concomitant]
     Active Substance: ESCITALOPRAM OXALATE
     Dosage: 10 MG, QD
  6. ADEMPAS [Suspect]
     Active Substance: RIOCIGUAT
     Dosage: UNK
     Route: 065
  7. SILDENAFIL CITRATE. [Suspect]
     Active Substance: SILDENAFIL CITRATE
     Indication: PULMONARY ARTERIAL HYPERTENSION
     Dosage: UNK
     Route: 065
     Dates: start: 2015, end: 2017
  8. UPTRAVI [Suspect]
     Active Substance: SELEXIPAG
     Dosage: 400 MCG, BID
     Route: 048
  9. OPSUMIT [Suspect]
     Active Substance: MACITENTAN
     Dosage: 10 MG, QD
     Route: 048
     Dates: start: 2015, end: 201601
  10. LEVOTHYROXINE. [Concomitant]
     Active Substance: LEVOTHYROXINE
     Dosage: UNK UNK, QD
  11. OPSUMIT [Suspect]
     Active Substance: MACITENTAN
     Indication: PULMONARY ARTERIAL HYPERTENSION
     Dosage: 10 MG, QD
     Route: 048
     Dates: start: 201701, end: 20181125
  12. ADEMPAS [Suspect]
     Active Substance: RIOCIGUAT
     Dosage: UNK
     Route: 065
     Dates: start: 2017
  13. ASPIRIN. [Concomitant]
     Active Substance: ASPIRIN
     Dosage: 325 MG, QD
  14. ORENITRAM [Concomitant]
     Active Substance: TREPROSTINIL
  15. DIGOXIN. [Concomitant]
     Active Substance: DIGOXIN
     Dosage: UNK, QD
  16. UPTRAVI [Suspect]
     Active Substance: SELEXIPAG
     Indication: PULMONARY ARTERIAL HYPERTENSION
     Dosage: 200 MCG, BID
     Route: 048
     Dates: start: 2017, end: 2017
  17. REMODULIN [Suspect]
     Active Substance: TREPROSTINIL
     Indication: PULMONARY ARTERIAL HYPERTENSION
     Route: 042

REACTIONS (27)
  - Hypotension [Unknown]
  - Pulmonary arterial hypertension [Unknown]
  - Pericardial effusion [Recovering/Resolving]
  - Weight decreased [Unknown]
  - Fatigue [Unknown]
  - Condition aggravated [Unknown]
  - Therapy non-responder [Unknown]
  - Liver disorder [Unknown]
  - Product dose omission [Recovered/Resolved]
  - Pulmonary arterial pressure increased [Unknown]
  - Dyspnoea [Unknown]
  - Cough [Unknown]
  - Mental disorder [Unknown]
  - Dizziness [Unknown]
  - Malaise [Recovered/Resolved]
  - Drug intolerance [Unknown]
  - Insomnia [Unknown]
  - Diarrhoea [Unknown]
  - Confusional state [Unknown]
  - Thyroid disorder [Unknown]
  - Cardiac failure [Recovered/Resolved]
  - Laboratory test abnormal [Unknown]
  - Pleural effusion [Recovering/Resolving]
  - Headache [Unknown]
  - Echocardiogram abnormal [Unknown]
  - Lung disorder [Unknown]
  - Blood pressure increased [Unknown]

NARRATIVE: CASE EVENT DATE: 20170620
